FAERS Safety Report 21541204 (Version 1)
Quarter: 2022Q4

REPORT INFORMATION
  Report Type: Spontaneous
  Country: US (occurrence: None)
  Receive Date: 20221101
  Receipt Date: 20221101
  Transmission Date: 20230113
  Serious: Yes (Hospitalization)
  Sender: FDA-Public Use
  Company Number: None

PATIENT
  Age: 30 Month
  Sex: Female

DRUGS (1)
  1. KANUMA [Suspect]
     Active Substance: SEBELIPASE ALFA
     Indication: Lipid metabolism disorder
     Dosage: FREQUENCY : WEEKLY;?
     Route: 042
     Dates: start: 202208

REACTIONS (4)
  - Vomiting [None]
  - Lethargy [None]
  - Feeding disorder [None]
  - Weight decreased [None]

NARRATIVE: CASE EVENT DATE: 20221028
